FAERS Safety Report 4793672-3 (Version None)
Quarter: 2005Q4

REPORT INFORMATION
  Report Type: 
  Country: None (occurrence: None)
  Receive Date: 20051006
  Receipt Date: 20050927
  Transmission Date: 20060501
  Serious: Yes (Other)
  Sender: FDA-Public Use
  Company Number: 2005135312

PATIENT
  Age: 51 Year
  Sex: Female
  Weight: 61.2356 kg

DRUGS (9)
  1. LIPITOR [Suspect]
     Indication: BLOOD CHOLESTEROL INCREASED
     Dosage: 60 MG (60 MG, 1 IN 1 D),
     Dates: start: 20040101
  2. PREDNISONE [Suspect]
     Indication: ASTHMA
     Dosage: (AS NECESSARY),
  3. ALBUTEROL [Concomitant]
  4. ADVAIR DISKUS 100/50 [Concomitant]
  5. MONTELUKAST (MONTELUKAST) [Concomitant]
  6. ZYRTEC [Concomitant]
  7. SYNTHROID [Concomitant]
  8. PREVACID [Concomitant]
  9. ANTIBIOTICS (ANTIBIOTICS) [Concomitant]

REACTIONS (9)
  - ABDOMINAL DISTENSION [None]
  - BREAST SWELLING [None]
  - FLUID RETENTION [None]
  - HYPERTHYROIDISM [None]
  - OEDEMA PERIPHERAL [None]
  - SENSATION OF HEAVINESS [None]
  - SINUSITIS [None]
  - UPPER RESPIRATORY TRACT INFECTION [None]
  - WEIGHT FLUCTUATION [None]
